FAERS Safety Report 6552942-9 (Version None)
Quarter: 2010Q1

REPORT INFORMATION
  Report Type: 
  Country: None (occurrence: None)
  Receive Date: 20100122
  Receipt Date: 20100115
  Transmission Date: 20100710
  Serious: Yes (Death)
  Sender: FDA-Public Use
  Company Number: 2009US004287

PATIENT
  Age: 80 Year
  Sex: Female

DRUGS (8)
  1. AMBISOME [Suspect]
     Indication: ENCEPHALITIC INFECTION
     Dosage: 200 MG, UID/QD, IV NOS
     Route: 042
     Dates: start: 20091120
  2. AMBISOME [Suspect]
     Indication: MENINGITIS CRYPTOCOCCAL
     Dosage: 200 MG, UID/QD, IV NOS
     Route: 042
     Dates: start: 20091120
  3. ANCOTIL (FLUCYTOSINE) [Suspect]
     Indication: ENCEPHALITIC INFECTION
     Dosage: 3500 MG, UID/QD, ORAL
     Route: 048
     Dates: start: 20091121
  4. ANCOTIL (FLUCYTOSINE) [Suspect]
     Indication: MENINGITIS CRYPTOCOCCAL
     Dosage: 3500 MG, UID/QD, ORAL
     Route: 048
     Dates: start: 20091121
  5. GARENOXACIN MESYLATE [Concomitant]
  6. PREDNISOLONE [Concomitant]
  7. MEIACT (CEFDITOREN PIVOXIL) [Concomitant]
  8. SOLU-MEDROL [Concomitant]

REACTIONS (7)
  - ARRHYTHMIA [None]
  - DIARRHOEA [None]
  - ENCEPHALITIS [None]
  - HYPOKALAEMIA [None]
  - MYDRIASIS [None]
  - RENAL IMPAIRMENT [None]
  - VOMITING [None]
